FAERS Safety Report 5124574-0 (Version None)
Quarter: 2006Q3

REPORT INFORMATION
  Report Type: 
  Country: None (occurrence: None)
  Receive Date: 20060822
  Receipt Date: 20060428
  Transmission Date: 20061208
  Serious: No
  Sender: FDA-Public Use
  Company Number: PHEH2006US05635

PATIENT
  Age: 70 Year
  Sex: Female

DRUGS (7)
  1. ENABLEX [Suspect]
     Indication: HYPERTONIC BLADDER
     Dosage: 7.5 MG ONCE/SINGLE, ORAL
     Route: 048
     Dates: start: 20060426, end: 20060426
  2. NEURONTIN [Concomitant]
  3. OMEPRAZOLE [Concomitant]
  4. SYNTHROID (LEVONTHYROXINE SODIUM) [Concomitant]
  5. FUROSEMIDE [Concomitant]
  6. ATENOLOL [Concomitant]
  7. CELEBREX [Concomitant]

REACTIONS (2)
  - HYPERSOMNIA [None]
  - SOMNOLENCE [None]
